FAERS Safety Report 9825964 (Version 2)
Quarter: 2014Q2

REPORT INFORMATION
  Report Type: Spontaneous
  Country: CA (occurrence: CA)
  Receive Date: 20140117
  Receipt Date: 20140423
  Transmission Date: 20141212
  Serious: Yes (Other)
  Sender: FDA-Public Use
  Company Number: CA-NOVOPROD-397672

PATIENT
  Sex: Female
  Weight: 58 kg

DRUGS (2)
  1. VAGIFEM? 10 [Suspect]
     Indication: PRODUCT USED FOR UNKNOWN INDICATION
     Dosage: 1 IV QHS X 2/52 THEN 2X/WEEK
     Route: 067
     Dates: start: 201201
  2. VAGIFEM? 10 [Suspect]
     Dosage: REFILLED FOR ONE YEAR
     Route: 067
     Dates: start: 201204

REACTIONS (3)
  - Uterine polyp [Unknown]
  - Endometrial hypertrophy [Unknown]
  - Vaginal haemorrhage [Unknown]
